FAERS Safety Report 5256749-4 (Version None)
Quarter: 2007Q1

REPORT INFORMATION
  Report Type: 
  Country: None (occurrence: None)
  Receive Date: 20070306
  Receipt Date: 20070223
  Transmission Date: 20070707
  Serious: Yes (Other)
  Sender: FDA-Public Use
  Company Number: US-PFIZER INC-2007014831

PATIENT
  Sex: Female
  Weight: 65.8 kg

DRUGS (7)
  1. LIPITOR [Suspect]
     Indication: BLOOD CHOLESTEROL
  2. NORVASC [Suspect]
     Indication: BLOOD PRESSURE
  3. LYRICA [Suspect]
     Indication: INTERVERTEBRAL DISC OPERATION
  4. LYRICA [Suspect]
     Indication: MOUTH INJURY
  5. NORPACE [Concomitant]
  6. CORGARD [Concomitant]
  7. TRILEPTAL [Concomitant]

REACTIONS (3)
  - CONSTIPATION [None]
  - INTERVERTEBRAL DISC OPERATION [None]
  - MOUTH INJURY [None]
